FAERS Safety Report 8914884 (Version 2)
Quarter: 2013Q1

REPORT INFORMATION
  Report Type: Spontaneous
  Country: US (occurrence: US)
  Receive Date: 20121116
  Receipt Date: 20130122
  Transmission Date: 20140127
  Serious: No
  Sender: FDA-Public Use
  Company Number: US-009507513-1211USA002847

PATIENT
  Age: 35 Year
  Sex: Female
  Weight: 61.22 kg

DRUGS (2)
  1. PEGINTRON [Suspect]
     Dosage: 0.5 ML, UNK
  2. RIBASPHERE [Suspect]

REACTIONS (3)
  - Injection site pruritus [Unknown]
  - Injection site erythema [Unknown]
  - Pruritus [Unknown]
